FAERS Safety Report 16017180 (Version 1)
Quarter: 2019Q1

REPORT INFORMATION
  Report Type: Spontaneous
  Country: US (occurrence: US)
  Receive Date: 20190131
  Receipt Date: 20190131
  Transmission Date: 20190418
  Serious: Yes (Hospitalization, Other)
  Sender: FDA-Public Use
  Company Number: None

PATIENT
  Age: 65 Year
  Sex: Male
  Weight: 126.78 kg

DRUGS (2)
  1. SUCCINYLCHOLINE [Suspect]
     Active Substance: SUCCINYLCHOLINE
  2. PROPOFOL. [Suspect]
     Active Substance: PROPOFOL

REACTIONS (3)
  - Procedural complication [None]
  - Anaesthetic complication cardiac [None]
  - Complication associated with device [None]

NARRATIVE: CASE EVENT DATE: 20190123
